FAERS Safety Report 10408437 (Version 1)
Quarter: 2014Q3

REPORT INFORMATION
  Report Type: Spontaneous
  Country: US (occurrence: None)
  Receive Date: 20140825
  Receipt Date: 20140825
  Transmission Date: 20150326
  Serious: Yes (Other)
  Sender: FDA-Public Use
  Company Number: None

PATIENT
  Age: 49 Year
  Sex: Male
  Weight: 65.32 kg

DRUGS (6)
  1. FLUTICASONE [Concomitant]
     Active Substance: FLUTICASONE\FLUTICASONE PROPIONATE
  2. VITAMIN D [Suspect]
     Active Substance: CHOLECALCIFEROL
     Indication: VITAMIN D DEFICIENCY
     Dosage: 50,000IU?8 OF 50,000IU ONE ON MONDAY + THURSDAY ?MONDAY AND THURSDAY OF THE 50,000IU ?TAKING BY MOUTH
     Route: 048
     Dates: start: 20140605, end: 20140704
  3. RANITIDINE [Concomitant]
     Active Substance: RANITIDINE\RANITIDINE HYDROCHLORIDE
  4. ROBITUSSIN (GUAIFENESIN) [Concomitant]
     Active Substance: GUAIFENESIN
  5. VITAMIN D [Suspect]
     Active Substance: CHOLECALCIFEROL
     Dosage: 1,000IU?(1) 1,000 IU EVERYDAY?1 EVERYDAY OF THE 1000IU?TAKING BY MOUTH
     Route: 048
  6. TYLENOL [Concomitant]
     Active Substance: ACETAMINOPHEN

REACTIONS (12)
  - Asthenia [None]
  - Musculoskeletal pain [None]
  - Limb discomfort [None]
  - Headache [None]
  - Weight decreased [None]
  - Myalgia [None]
  - Hypoaesthesia [None]
  - Fatigue [None]
  - Paraesthesia [None]
  - Chest pain [None]
  - Heart rate increased [None]
  - Arthralgia [None]

NARRATIVE: CASE EVENT DATE: 20140610
